FAERS Safety Report 4625551-6 (Version None)
Quarter: 2005Q2

REPORT INFORMATION
  Report Type: 
  Country: None (occurrence: None)
  Receive Date: 20050401
  Receipt Date: 20030605
  Transmission Date: 20051028
  Serious: Yes (Hospitalization, Disabling, Other)
  Sender: FDA-Public Use
  Company Number: US-MERCK-0306USA00657

PATIENT
  Age: 43 Year
  Sex: Female
  Weight: 63 kg

DRUGS (3)
  1. VIOXX [Suspect]
     Route: 048
  2. VIOXX [Suspect]
     Route: 048
  3. VIOXX [Suspect]
     Route: 048

REACTIONS (139)
  - ABDOMINAL PAIN LOWER [None]
  - ABNORMAL DREAMS [None]
  - ACTIVATED PARTIAL THROMBOPLASTIN TIME PROLONGED [None]
  - ACUTE SINUSITIS [None]
  - ADVERSE EVENT [None]
  - AMENORRHOEA [None]
  - AMNESIA [None]
  - ANGINA PECTORIS [None]
  - ANTITHROMBIN III INCREASED [None]
  - APHTHOUS STOMATITIS [None]
  - ARTHRALGIA [None]
  - ASTHENIA [None]
  - ATELECTASIS [None]
  - ATRIAL SEPTAL DEFECT [None]
  - BLOOD PRESSURE ABNORMAL [None]
  - BLOOD PRESSURE INCREASED [None]
  - BREAST PAIN [None]
  - BREAST TENDERNESS [None]
  - BRONCHITIS ACUTE [None]
  - BURSITIS [None]
  - CARDIAC DISORDER [None]
  - CEREBROVASCULAR ACCIDENT [None]
  - CHEST PAIN [None]
  - COAGULOPATHY [None]
  - COMPUTERISED TOMOGRAM ABNORMAL [None]
  - CONDITION AGGRAVATED [None]
  - CONJUNCTIVAL HAEMORRHAGE [None]
  - CONTUSION [None]
  - CONVULSION [None]
  - CYST [None]
  - DEEP VEIN THROMBOSIS [None]
  - DIARRHOEA [None]
  - DIFFICULTY IN WALKING [None]
  - DISEASE RECURRENCE [None]
  - DIZZINESS [None]
  - DRUG ABUSER [None]
  - DRUG DEPENDENCE [None]
  - DRY THROAT [None]
  - DYSHIDROSIS [None]
  - DYSMENORRHOEA [None]
  - DYSPNOEA [None]
  - DYSSTASIA [None]
  - ECZEMA [None]
  - EMBOLIC STROKE [None]
  - EMOTIONAL DISTRESS [None]
  - ENDOMETRIOSIS [None]
  - EPISTAXIS [None]
  - FALL [None]
  - FATIGUE [None]
  - FEELING COLD [None]
  - FEELING HOT AND COLD [None]
  - FLUSHING [None]
  - FUNGAL INFECTION [None]
  - GASTROENTERITIS VIRAL [None]
  - GENERALISED OEDEMA [None]
  - HEADACHE [None]
  - HEARING IMPAIRED [None]
  - HEMIPARESIS [None]
  - HIP ARTHROPLASTY [None]
  - HIP FRACTURE [None]
  - HODGKIN'S DISEASE [None]
  - HYPERCOAGULATION [None]
  - HYPERHIDROSIS [None]
  - HYPOAESTHESIA [None]
  - HYPOTHYROIDISM [None]
  - INCREASED TENDENCY TO BRUISE [None]
  - INFARCTION [None]
  - INGROWING NAIL [None]
  - INGUINAL HERNIA [None]
  - INJURY [None]
  - LARYNGITIS [None]
  - LOCALISED INFECTION [None]
  - LOSS OF LIBIDO [None]
  - LUNG INFILTRATION [None]
  - MASTITIS [None]
  - MEMORY IMPAIRMENT [None]
  - MENORRHAGIA [None]
  - MIGRAINE [None]
  - MOBILITY DECREASED [None]
  - MUCOUS MEMBRANE DISORDER [None]
  - MUNCHAUSEN'S SYNDROME [None]
  - MUSCLE ATROPHY [None]
  - MUSCLE SPASMS [None]
  - MUSCULOSKELETAL DISCOMFORT [None]
  - NAUSEA [None]
  - NECK MASS [None]
  - NERVOUSNESS [None]
  - OLIGOMENORRHOEA [None]
  - OSTEOARTHRITIS [None]
  - OTITIS EXTERNA [None]
  - OTITIS MEDIA [None]
  - OVARIAN CYST [None]
  - OVARIAN ENLARGEMENT [None]
  - PAIN [None]
  - PAIN IN EXTREMITY [None]
  - PAIN IN JAW [None]
  - PALPITATIONS [None]
  - PANIC ATTACK [None]
  - PANIC DISORDER [None]
  - PARAESTHESIA [None]
  - PATENT DUCTUS ARTERIOSUS [None]
  - PELVIC PAIN [None]
  - PERIPHERAL EMBOLISM [None]
  - PHARYNGITIS [None]
  - PHOTOPHOBIA [None]
  - POST PROCEDURAL COMPLICATION [None]
  - PROTEIN C DECREASED [None]
  - PROTEIN S DECREASED [None]
  - PROTHROMBIN LEVEL INCREASED [None]
  - PYREXIA [None]
  - RASH [None]
  - RENAL DISORDER [None]
  - RHINITIS ALLERGIC [None]
  - SCAR [None]
  - SINUS DISORDER [None]
  - SINUS OPERATION [None]
  - SINUSITIS [None]
  - SKIN NODULE [None]
  - SPLENIC CYST [None]
  - SWELLING [None]
  - SYSTEMIC LUPUS ERYTHEMATOSUS [None]
  - THINKING ABNORMAL [None]
  - THROMBOTIC STROKE [None]
  - TINNITUS [None]
  - TOOTH DISORDER [None]
  - TOOTH EXTRACTION [None]
  - TRANSIENT ISCHAEMIC ATTACK [None]
  - UPPER RESPIRATORY TRACT INFECTION [None]
  - URINARY TRACT INFECTION [None]
  - URINE ABNORMALITY [None]
  - VAGINAL MYCOSIS [None]
  - VAGINITIS BACTERIAL [None]
  - VIRAL INFECTION [None]
  - VIRAL UPPER RESPIRATORY TRACT INFECTION [None]
  - VISION BLURRED [None]
  - VISUAL ACUITY REDUCED [None]
  - VISUAL FIELD DEFECT [None]
  - VOMITING [None]
  - WEIGHT DECREASED [None]
